FAERS Safety Report 10064488 (Version 1)
Quarter: 2014Q2

REPORT INFORMATION
  Report Type: Spontaneous
  Country: US (occurrence: None)
  Receive Date: 20140407
  Receipt Date: 20140407
  Transmission Date: 20141212
  Serious: Yes (Hospitalization)
  Sender: FDA-Public Use
  Company Number: None

PATIENT
  Age: 63 Year
  Sex: Female
  Weight: 122 kg

DRUGS (2)
  1. ENOXAPARIN [Suspect]
     Indication: PULMONARY EMBOLISM
     Dosage: ML SQ
     Route: 058
     Dates: start: 20140314, end: 20140327
  2. WARFARIN [Suspect]
     Dosage: MG PO
     Route: 048
     Dates: start: 20140314, end: 20140327

REACTIONS (2)
  - Upper gastrointestinal haemorrhage [None]
  - Anaemia [None]
